FAERS Safety Report 9267713 (Version 1)
Quarter: 2013Q2

REPORT INFORMATION
  Report Type: Spontaneous
  Country: MX (occurrence: MX)
  Receive Date: 20130502
  Receipt Date: 20130502
  Transmission Date: 20140414
  Serious: Yes (Death, Hospitalization)
  Sender: FDA-Public Use
  Company Number: MX-ACTELION-A-CH2013-82667

PATIENT
  Age: 20 Year
  Sex: Female
  Weight: 43 kg

DRUGS (4)
  1. TRACLEER [Suspect]
     Indication: PULMONARY ARTERIAL HYPERTENSION
     Dosage: 62.5 MG, BID
     Route: 048
     Dates: start: 20130322, end: 20130429
  2. TRACLEER [Suspect]
     Dosage: UNK MG, BID
     Route: 048
     Dates: end: 20130321
  3. SILDENAFIL [Concomitant]
  4. MAGNESIUM [Concomitant]

REACTIONS (7)
  - Pulmonary arterial hypertension [Fatal]
  - Atrial flutter [Fatal]
  - Oedema peripheral [Fatal]
  - Palpitations [Fatal]
  - Dyspnoea [Fatal]
  - Chest pain [Fatal]
  - Dilatation ventricular [Unknown]
